FAERS Safety Report 4399435-5 (Version None)
Quarter: 2004Q2

REPORT INFORMATION
  Report Type: 
  Country: None (occurrence: None)
  Receive Date: 20040621
  Receipt Date: 20040227
  Transmission Date: 20050107
  Serious: Yes (Other)
  Sender: FDA-Public Use
  Company Number: USA-2004-0013537

PATIENT
  Age: 25 Year
  Sex: Male

DRUGS (5)
  1. OXYCODONE HCL [Suspect]
  2. MORPHINE SULFATE [Suspect]
  3. HYDROCODONE BITARTRATE [Suspect]
  4. MARIJUANA (CANNABIS) [Suspect]
  5. COCAINE (COCAINE) [Suspect]

REACTIONS (1)
  - POLYSUBSTANCE ABUSE [None]
